FAERS Safety Report 12288278 (Version 1)
Quarter: 2016Q2

REPORT INFORMATION
  Report Type: Spontaneous
  Country: US (occurrence: US)
  Receive Date: 20160420
  Receipt Date: 20160420
  Transmission Date: 20160815
  Serious: No
  Sender: FDA-Public Use
  Company Number: ADR-2015-01442

PATIENT
  Age: 47 Year
  Sex: Female

DRUGS (2)
  1. LEXAPRO [Suspect]
     Active Substance: ESCITALOPRAM OXALATE
  2. LIORESAL [Suspect]
     Active Substance: BACLOFEN
     Dosage: 257.4 MCG/DAY
     Route: 037

REACTIONS (3)
  - Muscle spasms [Recovered/Resolved]
  - Gait disturbance [Recovered/Resolved]
  - Nerve compression [Recovered/Resolved]
